FAERS Safety Report 9791319 (Version 1)
Quarter: 2014Q1

REPORT INFORMATION
  Report Type: Spontaneous
  Country: DE (occurrence: DE)
  Receive Date: 20140101
  Receipt Date: 20140101
  Transmission Date: 20141002
  Serious: Yes (Other)
  Sender: FDA-Public Use
  Company Number: DE-ROCHE-1324712

PATIENT
  Sex: Female

DRUGS (6)
  1. ENFUVIRTIDE [Suspect]
     Indication: HIV INFECTION
     Route: 065
  2. TIPRANAVIR [Suspect]
     Indication: HIV INFECTION
     Route: 065
  3. ZIDOVUDINE [Suspect]
     Indication: HIV INFECTION
     Route: 065
  4. LAMIVUDINE [Suspect]
     Indication: HIV INFECTION
     Route: 065
  5. TENOFOVIR [Suspect]
     Indication: HIV INFECTION
     Route: 065
  6. RITONAVIR [Suspect]
     Indication: HIV INFECTION
     Route: 065

REACTIONS (2)
  - Hepatotoxicity [Recovered/Resolved]
  - Maternal exposure during pregnancy [Unknown]
